FAERS Safety Report 8548661-X (Version None)
Quarter: 2012Q3

REPORT INFORMATION
  Report Type: 
  Country: None (occurrence: None)
  Receive Date: 20120720
  Receipt Date: 20120720
  Transmission Date: 20120928
  Serious: Yes (Hospitalization)
  Sender: FDA-Public Use
  Company Number: None

PATIENT
  Age: 66 Year
  Sex: Female
  Weight: 56.6996 kg

DRUGS (1)
  1. IBANDRONATE SODIUM [Suspect]
     Indication: BONE LOSS
     Dosage: 1 TAB MONTH PO
     Route: 048
     Dates: start: 20120403, end: 20120403

REACTIONS (5)
  - DYSPEPSIA [None]
  - BACK PAIN [None]
  - ODYNOPHAGIA [None]
  - OESOPHAGEAL ULCER [None]
  - DEHYDRATION [None]
